FAERS Safety Report 7121232-8 (Version None)
Quarter: 2010Q4

REPORT INFORMATION
  Report Type: 
  Country: None (occurrence: None)
  Receive Date: 20101124
  Receipt Date: 20101111
  Transmission Date: 20110411
  Serious: No
  Sender: FDA-Public Use
  Company Number: US-JNJFOC-20101106673

PATIENT
  Sex: Female
  Weight: 68.1 kg

DRUGS (2)
  1. FENTANYL-100 [Suspect]
     Indication: PAIN
     Route: 062
  2. DILAUDID [Concomitant]
     Indication: PAIN
     Route: 065

REACTIONS (1)
  - DRUG ADMINISTRATION ERROR [None]
